FAERS Safety Report 23319704 (Version 1)
Quarter: 2023Q4

REPORT INFORMATION
  Report Type: Spontaneous
  Country: IL (occurrence: IL)
  Receive Date: 20231220
  Receipt Date: 20231220
  Transmission Date: 20240110
  Serious: Yes (Other)
  Sender: FDA-Public Use
  Company Number: IL-BRISTOL-MYERS SQUIBB COMPANY-2023-178615

PATIENT
  Age: 64 Year
  Sex: Female

DRUGS (4)
  1. REVLIMID [Suspect]
     Active Substance: LENALIDOMIDE
     Indication: Splenic marginal zone lymphoma
     Dates: start: 202310, end: 202310
  2. REVLIMID [Suspect]
     Active Substance: LENALIDOMIDE
     Dates: start: 202310, end: 202311
  3. REVLIMID [Suspect]
     Active Substance: LENALIDOMIDE
     Dates: start: 202311, end: 202311
  4. DIOVAN [Concomitant]
     Active Substance: VALSARTAN
     Indication: Product used for unknown indication

REACTIONS (2)
  - Meniscus injury [Unknown]
  - Colitis microscopic [Recovering/Resolving]

NARRATIVE: CASE EVENT DATE: 20230101
